FAERS Safety Report 8375781-5 (Version None)
Quarter: 2012Q2

REPORT INFORMATION
  Report Type: 
  Country: None (occurrence: None)
  Receive Date: 20120518
  Receipt Date: 20120518
  Transmission Date: 20120825
  Serious: No
  Sender: FDA-Public Use
  Company Number: None

PATIENT

DRUGS (1)
  1. ADDERALL 5 [Suspect]

REACTIONS (6)
  - FATIGUE [None]
  - PRODUCT QUALITY ISSUE [None]
  - PRODUCT SUBSTITUTION ISSUE [None]
  - DRUG INEFFECTIVE [None]
  - EMOTIONAL DISORDER [None]
  - SUICIDAL IDEATION [None]
